FAERS Safety Report 10218389 (Version 1)
Quarter: 2014Q2

REPORT INFORMATION
  Report Type: Spontaneous
  Country: GB (occurrence: GB)
  Receive Date: 20140605
  Receipt Date: 20140605
  Transmission Date: 20141212
  Serious: Yes (Hospitalization)
  Sender: FDA-Public Use
  Company Number: GB-JNJFOC-20140514717

PATIENT
  Age: 39 Year
  Sex: Female

DRUGS (13)
  1. DOXORUBICIN HYDROCHLORIDE [Suspect]
     Indication: HODGKIN^S DISEASE
     Dosage: UNITS/M2
     Route: 042
     Dates: start: 20140509, end: 20140509
  2. VINBLASTINE [Suspect]
     Indication: HODGKIN^S DISEASE
     Dosage: DOSE 6 UNITS UNSPECIFIED
     Route: 042
     Dates: start: 20140509, end: 20140509
  3. DACARBAZINE [Suspect]
     Indication: HODGKIN^S DISEASE
     Dosage: DOSE 375 UNITS UNSPECIFIED
     Route: 042
     Dates: start: 20140509, end: 20140509
  4. BLEOMYCIN [Suspect]
     Indication: HODGKIN^S DISEASE
     Dosage: DOSE 10,000 UNITS/M2
     Route: 042
     Dates: start: 20140509, end: 20140509
  5. DOMPERIDONE [Concomitant]
     Dosage: 4 TIMES DAILY WHEN REQUIRED FOR 5 DAYS, AS NECESSARY
     Route: 065
  6. TRAMADOL [Concomitant]
     Indication: HEADACHE
     Dosage: 1-2 FOUR TIMES DAILY WHEN REQUIRED, AS NECESSARY
     Route: 065
  7. PARACETAMOL [Concomitant]
     Dosage: DOSE 1 ONCE A DAY.
     Route: 048
  8. DOCUSATE SODIUM [Concomitant]
     Dosage: 200 DOSE UNITS UNSPECIFIED 1 A DAY.
     Route: 065
  9. DEXAMETHASONE [Concomitant]
     Dosage: 4 UNITS UNSPECIFIED 1-3 DAYS AND 15-17 DAYS.
     Route: 065
  10. ALLOPURINOL [Concomitant]
     Dosage: 300.0 ONCE A DAY FOR 4 WEEKS, 1ST CYCLE
     Route: 048
  11. CO-TRIMOXAZOLE [Concomitant]
     Dosage: DOSE UNITS UNSPECIFIED 480 TWICE ADAY.
     Route: 048
  12. ONDANSETRON [Concomitant]
     Dosage: 4.01-2 TWICE DAILY FOR 2 DAYS
     Route: 065
  13. CYCLIZINE [Concomitant]
     Dosage: DOSE 50 UNITS UNSPECIFIED
     Route: 065

REACTIONS (4)
  - Migraine [Recovered/Resolved]
  - Photopsia [Recovered/Resolved]
  - Malaise [Recovered/Resolved]
  - Malaise [Recovered/Resolved]
